FAERS Safety Report 14152239 (Version 1)
Quarter: 2017Q4

REPORT INFORMATION
  Report Type: Spontaneous
  Country: US (occurrence: US)
  Receive Date: 20171102
  Receipt Date: 20171102
  Transmission Date: 20180321
  Serious: Yes (Hospitalization)
  Sender: FDA-Public Use
  Company Number: US-PFIZER INC-2017469612

PATIENT
  Age: 58 Year
  Sex: Female

DRUGS (5)
  1. XARELTO [Suspect]
     Active Substance: RIVAROXABAN
     Dosage: UNK
  2. MELOXICAM. [Suspect]
     Active Substance: MELOXICAM
     Dosage: UNK
  3. ASPIRIN. [Suspect]
     Active Substance: ASPIRIN
     Dosage: UNK
  4. CELEBREX [Suspect]
     Active Substance: CELECOXIB
     Dosage: UNK
  5. FAMOTIDINE. [Suspect]
     Active Substance: FAMOTIDINE
     Indication: ULCER
     Dosage: UNK

REACTIONS (1)
  - Gastric haemorrhage [Recovered/Resolved]
